FAERS Safety Report 9271950 (Version 2)
Quarter: 2013Q4

REPORT INFORMATION
  Report Type: Spontaneous
  Country: FR (occurrence: FR)
  Receive Date: 20130506
  Receipt Date: 20131119
  Transmission Date: 20140711
  Serious: Yes (Other)
  Sender: FDA-Public Use
  Company Number: FR-US-EMD SERONO, INC.-7207324

PATIENT
  Age: 44 Year
  Sex: Female

DRUGS (7)
  1. REBIF [Suspect]
     Indication: MULTIPLE SCLEROSIS
     Route: 058
     Dates: start: 2011
  2. DETENSIEL [Suspect]
     Indication: HYPERTENSION
     Route: 048
     Dates: start: 1991
  3. DETENSIEL [Suspect]
     Route: 048
  4. DETENSIEL [Suspect]
     Route: 048
     Dates: start: 201211
  5. JOUVENCE DE L^ABBE SOURY [Suspect]
     Indication: PRODUCT USED FOR UNKNOWN INDICATION
  6. BACLOFEN [Concomitant]
     Indication: MULTIPLE SCLEROSIS
  7. CLARITYNE                          /00917501/ [Concomitant]
     Indication: HYPERSENSITIVITY

REACTIONS (7)
  - Ear haemorrhage [Recovered/Resolved]
  - Vaginal haemorrhage [Recovered/Resolved]
  - Hypertension [Recovered/Resolved]
  - Epistaxis [Recovered/Resolved]
  - Palpitations [Recovered/Resolved]
  - Fatigue [Not Recovered/Not Resolved]
  - Drug interaction [Not Recovered/Not Resolved]
